FAERS Safety Report 9965321 (Version 1)
Quarter: 2014Q1

REPORT INFORMATION
  Report Type: Report from Study
  Country: US (occurrence: US)
  Receive Date: 20140305
  Receipt Date: 20140305
  Transmission Date: 20141002
  Serious: No
  Sender: FDA-Public Use
  Company Number: US-ABBVIE-13P-163-1124468-00

PATIENT
  Sex: Male

DRUGS (2)
  1. HUMIRA [Suspect]
     Indication: PSORIATIC ARTHROPATHY
     Dosage: 2PENS ON DAY 1
     Dates: start: 20130716
  2. HUMIRA [Suspect]
     Dosage: 1 PEN ONE WEEK

REACTIONS (1)
  - Migraine [Unknown]
